FAERS Safety Report 9379948 (Version 2)
Quarter: 2013Q4

REPORT INFORMATION
  Report Type: Spontaneous
  Country: US (occurrence: US)
  Receive Date: 20130702
  Receipt Date: 20131119
  Transmission Date: 20140711
  Serious: Yes (Hospitalization, Other)
  Sender: FDA-Public Use
  Company Number: PHEH2013US013902

PATIENT
  Age: 64 Year
  Sex: Male

DRUGS (7)
  1. ZOMETA [Suspect]
     Indication: PLASMA CELL MYELOMA
     Dosage: 4 MG, EVERY 28 DAYS
     Route: 042
     Dates: start: 20110708, end: 20110913
  2. DEXAMETHASONE [Suspect]
     Dosage: UNK UKN, UNK
  3. REVLIMID [Suspect]
     Dosage: UNK UKN, UNK
  4. CEFTRIAXONE [Concomitant]
     Dosage: UNK UKN, UNK
  5. PREDNISONE [Concomitant]
     Dosage: UNK UKN, UNK
  6. ANTIBIOTICS [Concomitant]
     Dosage: UNK UKN, UNK
  7. STEROID ANTIBACTERIALS [Concomitant]
     Dosage: UNK UKN, UNK

REACTIONS (8)
  - Pneumonia [Recovering/Resolving]
  - Chronic obstructive pulmonary disease [Unknown]
  - Dyspnoea [Recovering/Resolving]
  - Cough [Recovering/Resolving]
  - Bronchitis [Recovering/Resolving]
  - Metastases to bone [Unknown]
  - Blood glucose decreased [Unknown]
  - Pain [Unknown]
